FAERS Safety Report 19594855 (Version 2)
Quarter: 2021Q3

REPORT INFORMATION
  Report Type: Spontaneous
  Country: ES (occurrence: ES)
  Receive Date: 20210722
  Receipt Date: 20210816
  Transmission Date: 20211014
  Serious: Yes (Other)
  Sender: FDA-Public Use
  Company Number: NVSC2020ES197599

PATIENT
  Age: 54 Year
  Sex: Female

DRUGS (1)
  1. ADALIMUMAB [Suspect]
     Active Substance: ADALIMUMAB
     Indication: RHEUMATOID ARTHRITIS
     Dosage: 40 MG, BIW (40 MILLIGRAM, Q2WK)
     Route: 058

REACTIONS (3)
  - Mycobacterium marinum infection [Recovered/Resolved]
  - Skin infection [Recovered/Resolved]
  - Limb injury [Unknown]
